FAERS Safety Report 18839560 (Version 1)
Quarter: 2021Q1

REPORT INFORMATION
  Report Type: Report from Study
  Country: US (occurrence: US)
  Receive Date: 20210203
  Receipt Date: 20210203
  Transmission Date: 20210419
  Serious: No
  Sender: FDA-Public Use
  Company Number: US-EXELIXIS-CABO-20034057

PATIENT
  Age: 70 Year
  Sex: Male

DRUGS (1)
  1. CABOMETYX [Suspect]
     Active Substance: CABOZANTINIB S-MALATE
     Indication: PRODUCT USED FOR UNKNOWN INDICATION
     Dosage: 60 MG, QD
     Route: 048
     Dates: start: 20201026

REACTIONS (5)
  - Fatigue [Unknown]
  - Oral pain [Unknown]
  - Rash macular [Unknown]
  - Dermatitis diaper [Unknown]
  - Constipation [Unknown]

NARRATIVE: CASE EVENT DATE: 20201005
